FAERS Safety Report 9525081 (Version 1)
Quarter: 2013Q3

REPORT INFORMATION
  Report Type: Spontaneous
  Country: US (occurrence: None)
  Receive Date: 20130912
  Receipt Date: 20130912
  Transmission Date: 20140515
  Serious: Yes (Other)
  Sender: FDA-Public Use
  Company Number: 2013-US-000100

PATIENT
  Age: 53 Year
  Sex: Male

DRUGS (1)
  1. XYREM [Suspect]
     Indication: INSOMNIA
     Route: 048
     Dates: start: 20110824

REACTIONS (5)
  - Loss of consciousness [None]
  - Haemorrhage [None]
  - Aggression [None]
  - Speech disorder [None]
  - Confusional state [None]
